FAERS Safety Report 8571176-X (Version None)
Quarter: 2012Q3

REPORT INFORMATION
  Report Type: 
  Country: None (occurrence: None)
  Receive Date: 20120806
  Receipt Date: 20120803
  Transmission Date: 20120928
  Serious: Yes (Other)
  Sender: FDA-Public Use
  Company Number: US-PFIZER INC-2012088462

PATIENT
  Age: 60 Year
  Sex: Female
  Weight: 47.62 kg

DRUGS (4)
  1. LIPITOR [Suspect]
     Indication: BLOOD CHOLESTEROL INCREASED
     Dosage: 20 MG ONCE DAILY
     Route: 048
     Dates: start: 20110101, end: 20111201
  2. ATORVASTATIN CALCIUM [Suspect]
     Indication: BLOOD CHOLESTEROL INCREASED
     Dosage: UNK
     Dates: start: 20120201, end: 20120408
  3. ATORVASTATIN CALCIUM [Suspect]
     Indication: BLOOD CHOLESTEROL ABNORMAL
     Dosage: UNK
  4. ZOCOR [Suspect]
     Indication: BLOOD CHOLESTEROL INCREASED
     Dosage: UNK
     Dates: start: 20111201, end: 20111201

REACTIONS (5)
  - HYPERSENSITIVITY [None]
  - ARTHRALGIA [None]
  - PARAESTHESIA [None]
  - MYALGIA [None]
  - ABDOMINAL PAIN UPPER [None]
